FAERS Safety Report 19713311 (Version 1)
Quarter: 2021Q3

REPORT INFORMATION
  Report Type: Spontaneous
  Country: US (occurrence: US)
  Receive Date: 20210817
  Receipt Date: 20210817
  Transmission Date: 20211014
  Serious: Yes (Death)
  Sender: FDA-Public Use
  Company Number: None

PATIENT
  Age: 55 Year
  Sex: Female

DRUGS (1)
  1. CAPECITABINE  TAB 500MG [Suspect]
     Active Substance: CAPECITABINE
     Dosage: OTHER DOSE:2 TABLETS;?
     Route: 048
     Dates: start: 2020, end: 202107

REACTIONS (1)
  - Death [None]

NARRATIVE: CASE EVENT DATE: 20210717
